FAERS Safety Report 8769672 (Version 1)
Quarter: 2012Q4

REPORT INFORMATION
  Report Type: 
  Country: BR (occurrence: BR)
  Receive Date: 20120905
  Receipt Date: 20120905
  Transmission Date: 20130627
  Serious: Yes (Other)
  Sender: FDA-Public Use
  Company Number: BR-JNJFOC-20120900117

PATIENT
  Sex: Male
  Weight: 105 kg

DRUGS (5)
  1. NICORETTE FRESHMINT 2MG GUM [Suspect]
     Indication: SMOKING CESSATION THERAPY
     Route: 048
     Dates: start: 2001
  2. NICORETTE 4 MG GUM [Suspect]
     Indication: SMOKING CESSATION THERAPY
     Route: 048
     Dates: start: 2001
  3. ACETYL SALICYLIC ACID [Concomitant]
     Indication: ANTICOAGULANT THERAPY
     Route: 048
     Dates: start: 2001
  4. PENTOX [Concomitant]
     Indication: MEMORY IMPAIRMENT
     Route: 048
     Dates: start: 2001
  5. COVERSYL [Concomitant]
     Indication: HYPERTENSION
     Route: 048
     Dates: start: 2001

REACTIONS (3)
  - Nicotine dependence [Not Recovered/Not Resolved]
  - Intentional drug misuse [Unknown]
  - Wrong technique in drug usage process [Unknown]
